FAERS Safety Report 10750184 (Version 3)
Quarter: 2015Q2

REPORT INFORMATION
  Report Type: Report from Study
  Country: NZ (occurrence: NZ)
  Receive Date: 20150129
  Receipt Date: 20150406
  Transmission Date: 20150821
  Serious: Yes (Death, Other)
  Sender: FDA-Public Use
  Company Number: PHHY2015NZ009513

PATIENT
  Age: 77 Year
  Sex: Male
  Weight: 72.2 kg

DRUGS (8)
  1. MOVICOL [Concomitant]
     Active Substance: POLYETHYLENE GLYCOL 3350\POTASSIUM CHLORIDE\SODIUM BICARBONATE\SODIUM CHLORIDE
     Indication: CONSTIPATION
     Dosage: UNK
     Route: 048
     Dates: end: 20141210
  2. CLOZARIL [Suspect]
     Active Substance: CLOZAPINE
     Indication: SCHIZOPHRENIA
     Dosage: 25 MG, BID
     Route: 048
     Dates: start: 2003
  3. VALPROATE [Concomitant]
     Active Substance: VALPROATE SODIUM
     Indication: BIPOLAR DISORDER
     Dosage: UNK
     Route: 048
     Dates: end: 20141210
  4. CLOZARIL [Suspect]
     Active Substance: CLOZAPINE
     Indication: AGGRESSION
  5. LAXOL [Concomitant]
     Active Substance: CASTOR OIL
     Indication: CONSTIPATION
     Dosage: UNK
     Route: 048
     Dates: end: 20141210
  6. CLOZARIL [Suspect]
     Active Substance: CLOZAPINE
     Indication: PSYCHOTIC DISORDER
     Dosage: DOSE DECRESED
     Route: 048
     Dates: start: 201412, end: 20141210
  7. CITALOPRAM [Concomitant]
     Active Substance: CITALOPRAM HYDROBROMIDE
     Indication: DEPRESSION
     Dosage: UNK
     Route: 048
     Dates: end: 20141210
  8. OMEPRAZOLE. [Concomitant]
     Active Substance: OMEPRAZOLE
     Indication: REFLUX GASTRITIS
     Dosage: UNK
     Route: 048
     Dates: end: 20141210

REACTIONS (7)
  - General physical health deterioration [Fatal]
  - Urinary tract infection [Unknown]
  - Multi-organ failure [Fatal]
  - Cerebrovascular accident [Unknown]
  - Dysphagia [Unknown]
  - Product use issue [Unknown]
  - Dementia [Fatal]

NARRATIVE: CASE EVENT DATE: 201412
